FAERS Safety Report 13771052 (Version 1)
Quarter: 2017Q3

REPORT INFORMATION
  Report Type: Spontaneous
  Country: US (occurrence: US)
  Receive Date: 20170720
  Receipt Date: 20170720
  Transmission Date: 20171127
  Serious: Yes (Other)
  Sender: FDA-Public Use
  Company Number: None

PATIENT
  Age: 36 Year
  Sex: Female
  Weight: 65.25 kg

DRUGS (21)
  1. WARFARIN [Concomitant]
     Active Substance: WARFARIN
  2. ZOFRAN [Concomitant]
     Active Substance: ONDANSETRON HYDROCHLORIDE
  3. VITAMIN D3 [Concomitant]
     Active Substance: CHOLECALCIFEROL
  4. MAGNESIUM [Concomitant]
     Active Substance: MAGNESIUM
  5. MOTRIN [Concomitant]
     Active Substance: IBUPROFEN
  6. ROSUVASTATIN CALCIUM TABLETS [Suspect]
     Active Substance: ROSUVASTATIN CALCIUM
     Indication: BLOOD CHOLESTEROL INCREASED
     Dosage: ?          OTHER STRENGTH:MG;QUANTITY:90 TABLET(S);?
     Route: 048
     Dates: start: 20170505, end: 20170627
  7. HALLS HONEY LEMON [Concomitant]
     Active Substance: MENTHOL
  8. UPTIME ENERGY BLEND (COQ10, GINKGO BILOBA, GINSENG) [Concomitant]
  9. DHEA [Concomitant]
     Active Substance: PRASTERONE
  10. XANAX [Concomitant]
     Active Substance: ALPRAZOLAM
  11. IRON [Concomitant]
     Active Substance: IRON
  12. THE ORIGINAL NATURAL HERB COUGH DROPS [Concomitant]
     Active Substance: MENTHOL
  13. GENERIC COUGH DROPS [Concomitant]
  14. PROBIOTICS [Concomitant]
     Active Substance: PROBIOTICS NOS
  15. TYLENOL W/CODEINE #3 [Concomitant]
  16. PROPRANOLOL [Concomitant]
     Active Substance: PROPRANOLOL HYDROCHLORIDE
  17. WELLBUTRIN XL [Concomitant]
     Active Substance: BUPROPION HYDROCHLORIDE
  18. AMBIEN EQ [Concomitant]
  19. TESSALON [Concomitant]
     Active Substance: BENZONATATE
  20. GUAFENESIN XR [Concomitant]
  21. DIAMOX SEQUELS [Concomitant]
     Active Substance: ACETAZOLAMIDE

REACTIONS (8)
  - Vomiting [None]
  - Oropharyngeal pain [None]
  - Nausea [None]
  - Lymph node pain [None]
  - Cough [None]
  - Dyspnoea [None]
  - Influenza like illness [None]
  - Fatigue [None]

NARRATIVE: CASE EVENT DATE: 20170509
